FAERS Safety Report 7285066-6 (Version None)
Quarter: 2011Q1

REPORT INFORMATION
  Report Type: 
  Country: None (occurrence: None)
  Receive Date: 20110210
  Receipt Date: 20110207
  Transmission Date: 20110831
  Serious: Yes (Hospitalization)
  Sender: FDA-Public Use
  Company Number: BR-ABBOTT-11P-020-0703468-00

PATIENT
  Sex: Female
  Weight: 42 kg

DRUGS (3)
  1. HUMIRA [Suspect]
     Indication: CROHN'S DISEASE
     Dosage: INDUCTION DOSE
     Route: 058
     Dates: start: 20090101
  2. HUMIRA [Suspect]
     Dosage: 15 DAYS LATER
  3. LORAZEPAM [Concomitant]
     Indication: SEDATIVE THERAPY
     Route: 048
     Dates: start: 20101201

REACTIONS (5)
  - PURULENT DISCHARGE [None]
  - SUTURE RUPTURE [None]
  - WEIGHT DECREASED [None]
  - GROIN ABSCESS [None]
  - POSTOPERATIVE WOUND INFECTION [None]
